FAERS Safety Report 23535423 (Version 1)
Quarter: 2024Q1

REPORT INFORMATION
  Report Type: Spontaneous
  Country: FR (occurrence: None)
  Receive Date: 20240218
  Receipt Date: 20240218
  Transmission Date: 20240410
  Serious: Yes (Other)
  Sender: FDA-Public Use
  Company Number: 2024A038561

PATIENT
  Age: 15 Year
  Sex: Male

DRUGS (1)
  1. TEZSPIRE [Suspect]
     Active Substance: TEZEPELUMAB-EKKO
     Indication: Asthma
     Route: 058
     Dates: start: 202309

REACTIONS (1)
  - Acute respiratory failure [Recovered/Resolved]
